FAERS Safety Report 15298898 (Version 1)
Quarter: 2018Q3

REPORT INFORMATION
  Report Type: Other
  Country: FR (occurrence: FR)
  Receive Date: 20180821
  Receipt Date: 20180821
  Transmission Date: 20181010
  Serious: Yes (Hospitalization)
  Sender: FDA-Public Use
  Company Number: FR-DENTSPLY-2018SCDP000346

PATIENT
  Age: 27 Year
  Sex: Female

DRUGS (1)
  1. PRILOCAINE AND LIDOCAINE [Suspect]
     Active Substance: LIDOCAINE\PRILOCAINE
     Indication: LOCAL ANAESTHESIA
     Dosage: 11 DF, UNK
     Route: 003
     Dates: start: 20171128, end: 20171128

REACTIONS (3)
  - Asthenia [Recovered/Resolved]
  - Methaemoglobinaemia [Recovered/Resolved]
  - Application site anaesthesia [Recovered/Resolved]

NARRATIVE: CASE EVENT DATE: 20171128
